FAERS Safety Report 9917442 (Version 2)
Quarter: 2014Q1

REPORT INFORMATION
  Report Type: Spontaneous
  Country: US (occurrence: US)
  Receive Date: 20140221
  Receipt Date: 20140312
  Transmission Date: 20141002
  Serious: No
  Sender: FDA-Public Use
  Company Number: US-PFIZER INC-2014049414

PATIENT
  Age: 36 Year
  Sex: Female
  Weight: 46.26 kg

DRUGS (2)
  1. LYRICA [Suspect]
     Indication: NERVOUS SYSTEM DISORDER
     Dosage: 50 MG, DAILY
     Dates: start: 20140217
  2. LYRICA [Suspect]
     Indication: COMPLEX REGIONAL PAIN SYNDROME

REACTIONS (2)
  - Feeling abnormal [Unknown]
  - Balance disorder [Unknown]
